FAERS Safety Report 4869567-3 (Version None)
Quarter: 2005Q4

REPORT INFORMATION
  Report Type: 
  Country: None (occurrence: None)
  Receive Date: 20051230
  Receipt Date: 20051220
  Transmission Date: 20060501
  Serious: Yes (Hospitalization)
  Sender: FDA-Public Use
  Company Number: FR-SANOFI-SYNTHELABO-A02200503385

PATIENT
  Sex: Male
  Weight: 2.9 kg

DRUGS (2)
  1. STILNOX [Suspect]
     Dosage: UNK
     Route: 064
     Dates: end: 20051127
  2. LAMALINE [Suspect]
     Dosage: UNK
     Route: 064
     Dates: end: 20051127

REACTIONS (9)
  - AGITATION NEONATAL [None]
  - ASPARTATE AMINOTRANSFERASE INCREASED [None]
  - BLOOD CREATINE PHOSPHOKINASE INCREASED [None]
  - DRUG EXPOSURE DURING PREGNANCY [None]
  - DRUG WITHDRAWAL SYNDROME NEONATAL [None]
  - GAMMA-GLUTAMYLTRANSFERASE INCREASED [None]
  - KETONURIA [None]
  - NEONATAL DISORDER [None]
  - PROTEINURIA [None]
